FAERS Safety Report 7187235-2 (Version None)
Quarter: 2010Q4

REPORT INFORMATION
  Report Type: 
  Country: None (occurrence: None)
  Receive Date: 20101222
  Receipt Date: 20101210
  Transmission Date: 20110411
  Serious: Yes (Other)
  Sender: FDA-Public Use
  Company Number: US-ELI_LILLY_AND_COMPANY-US200908000650

PATIENT
  Sex: Female

DRUGS (6)
  1. FORTEO [Suspect]
     Indication: OSTEOPOROSIS
     Dosage: UNK, UNK
     Dates: start: 20090308
  2. FORTEO [Suspect]
     Dosage: 20 UG, DAILY (1/D)
     Dates: start: 20090803
  3. FOSAMAX [Concomitant]
  4. VICODIN [Concomitant]
  5. IBUPROFEN [Concomitant]
     Indication: TEMPOROMANDIBULAR JOINT SYNDROME
  6. PREMARIN [Concomitant]
     Dosage: UNK, UNKNOWN
     Dates: end: 20101101

REACTIONS (16)
  - BLADDER PAIN [None]
  - BREAST CANCER STAGE II [None]
  - BREATH ODOUR [None]
  - BRUXISM [None]
  - DIZZINESS [None]
  - FACIAL PAIN [None]
  - FATIGUE [None]
  - HEADACHE [None]
  - INJECTION SITE ERYTHEMA [None]
  - INJECTION SITE REACTION [None]
  - MALAISE [None]
  - MIGRAINE [None]
  - PAIN [None]
  - SINUS HEADACHE [None]
  - STRESS [None]
  - TEMPOROMANDIBULAR JOINT SYNDROME [None]
